FAERS Safety Report 22211297 (Version 1)
Quarter: 2023Q2

REPORT INFORMATION
  Report Type: Spontaneous
  Country: PT (occurrence: PT)
  Receive Date: 20230414
  Receipt Date: 20230414
  Transmission Date: 20230722
  Serious: Yes (Other)
  Sender: FDA-Public Use
  Company Number: PT-AUROBINDO-AUR-APL-2023-030188

PATIENT
  Age: 64 Year
  Sex: Female

DRUGS (1)
  1. LIDOCAINE [Suspect]
     Active Substance: LIDOCAINE
     Indication: Pain
     Dosage: UNK

REACTIONS (6)
  - Depressed level of consciousness [Unknown]
  - Disorientation [Unknown]
  - Dyskinesia [Unknown]
  - Paraesthesia oral [Unknown]
  - Disease progression [Unknown]
  - Systemic toxicity [Unknown]
